FAERS Safety Report 18343132 (Version 5)
Quarter: 2021Q4

REPORT INFORMATION
  Report Type: Report from Study
  Country: US (occurrence: US)
  Receive Date: 20201005
  Receipt Date: 20211103
  Transmission Date: 20220304
  Serious: Yes (Hospitalization, Other)
  Sender: FDA-Public Use
  Company Number: US-HORIZON-RAV-0343-2020

PATIENT

DRUGS (14)
  1. RAVICTI [Suspect]
     Active Substance: GLYCEROL PHENYLBUTYRATE
     Indication: Carbamoyl phosphate synthetase deficiency
     Dosage: UNK
     Route: 065
     Dates: start: 201512
  2. RAVICTI [Suspect]
     Active Substance: GLYCEROL PHENYLBUTYRATE
     Dosage: 3.5 ML, TID
     Route: 065
     Dates: start: 20200806
  3. RAVICTI [Suspect]
     Active Substance: GLYCEROL PHENYLBUTYRATE
     Dosage: 4 ML TID
     Route: 065
     Dates: start: 20200814
  4. RAVICTI [Suspect]
     Active Substance: GLYCEROL PHENYLBUTYRATE
     Dosage: 5 ML TID
     Route: 065
     Dates: start: 20200828
  5. RAVICTI [Suspect]
     Active Substance: GLYCEROL PHENYLBUTYRATE
     Dosage: 3 ML TID
     Route: 065
     Dates: start: 20201010
  6. INTRALIPID [Concomitant]
     Active Substance: EGG PHOSPHOLIPIDS\GLYCERIN\SOYBEAN OIL
  7. Insulin drip [Concomitant]
  8. DEXMEDETOMIDINE [Concomitant]
     Active Substance: DEXMEDETOMIDINE
  9. SODIUM BICARBONATE [Concomitant]
     Active Substance: SODIUM BICARBONATE
  10. POTASSIUM CHLORIDE [Concomitant]
     Active Substance: POTASSIUM CHLORIDE
  11. MIDAZOLAM [Concomitant]
     Active Substance: MIDAZOLAM
  12. CALCIUM GLUCONATE [Concomitant]
     Active Substance: CALCIUM GLUCONATE
  13. CITRULLINE [Concomitant]
     Active Substance: CITRULLINE
     Indication: Product used for unknown indication
  14. VITAMINS [Concomitant]
     Active Substance: VITAMINS
     Indication: Product used for unknown indication

REACTIONS (16)
  - Blood lactic acid increased [Recovered/Resolved]
  - Illness [Recovering/Resolving]
  - Pancytopenia [Not Recovered/Not Resolved]
  - Vomiting [Unknown]
  - Overdose [Recovered/Resolved]
  - Nystagmus [Unknown]
  - Dehydration [Unknown]
  - Haematuria [Unknown]
  - Hyperammonaemic crisis [Unknown]
  - Metabolic acidosis [Unknown]
  - Ammonia increased [Recovered/Resolved]
  - Amino acid level increased [Unknown]
  - Malnutrition [Unknown]
  - Copper deficiency [Unknown]
  - Ceruloplasmin decreased [Unknown]
  - Vitamin B6 deficiency [Unknown]

NARRATIVE: CASE EVENT DATE: 20200924
